FAERS Safety Report 12882512 (Version 3)
Quarter: 2017Q1

REPORT INFORMATION
  Report Type: Spontaneous
  Country: IT (occurrence: IT)
  Receive Date: 20161025
  Receipt Date: 20170120
  Transmission Date: 20170428
  Serious: Yes (Hospitalization)
  Sender: FDA-Public Use
  Company Number: IT-PFIZER INC-2016486330

PATIENT
  Age: 46 Year
  Sex: Male
  Weight: 75 kg

DRUGS (1)
  1. CARBOPLATIN. [Suspect]
     Active Substance: CARBOPLATIN
     Indication: LUNG NEOPLASM MALIGNANT
     Dosage: 500 UG, CYCLIC
     Route: 041
     Dates: start: 20160610, end: 20161004

REACTIONS (6)
  - Hypotension [Recovered/Resolved]
  - Oxygen saturation decreased [Recovered/Resolved]
  - Hyperhidrosis [Recovered/Resolved]
  - Heart rate increased [Recovered/Resolved]
  - Chest pain [Recovered/Resolved]
  - Loss of consciousness [Recovered/Resolved]

NARRATIVE: CASE EVENT DATE: 20161004
